FAERS Safety Report 5574736-3 (Version None)
Quarter: 2007Q4

REPORT INFORMATION
  Report Type: 
  Country: None (occurrence: None)
  Receive Date: 20071221
  Receipt Date: 20071221
  Transmission Date: 20080405
  Serious: Yes (Hospitalization)
  Sender: FDA-Public Use
  Company Number: None

PATIENT
  Age: 28 Year
  Sex: Female
  Weight: 55 kg

DRUGS (7)
  1. EMTRICITABINE [Suspect]
     Indication: HIV INFECTION
     Dosage: 200 MG QD PO
     Route: 048
     Dates: start: 20060908, end: 20071016
  2. DIDANOSINE [Suspect]
     Indication: HIV INFECTION
     Dosage: 250 MG QD PO
     Route: 048
     Dates: start: 20060908, end: 20071016
  3. ATAZANAVIR SULFATE [Suspect]
     Indication: HIV INFECTION
     Dosage: 400 MG QD PO
     Route: 048
     Dates: start: 20060908, end: 20071016
  4. TRUVADA [Suspect]
     Indication: HIV INFECTION
     Dosage: 200/300 MG QD PO
     Route: 048
     Dates: start: 20071018, end: 20071130
  5. ZIDOVUDINE [Suspect]
     Indication: HIV INFECTION
     Dosage: 300 MG BID PO
     Route: 048
     Dates: start: 20071018, end: 20071201
  6. NEVIRAPINE [Suspect]
     Indication: HIV INFECTION
     Dosage: 200 MG BID PO
     Route: 048
     Dates: start: 20071018, end: 20071201
  7. FERROUS SULFATE TAB [Concomitant]

REACTIONS (12)
  - BLOOD ALBUMIN DECREASED [None]
  - BLOOD POTASSIUM DECREASED [None]
  - DRUG DOSE OMISSION [None]
  - DRUG EXPOSURE DURING PREGNANCY [None]
  - HAEMATOCRIT DECREASED [None]
  - HAEMOGLOBIN DECREASED [None]
  - MALARIA [None]
  - POSTPARTUM HAEMORRHAGE [None]
  - PYREXIA [None]
  - RESPIRATORY RATE INCREASED [None]
  - STILLBIRTH [None]
  - VIRAL LOAD INCREASED [None]
